FAERS Safety Report 9665939 (Version 3)
Quarter: 2014Q2

REPORT INFORMATION
  Report Type: Spontaneous
  Country: US (occurrence: None)
  Receive Date: 20131031
  Receipt Date: 20140522
  Transmission Date: 20141212
  Serious: Yes (Death)
  Sender: FDA-Public Use
  Company Number: 2013SGN00651

PATIENT
  Age: 74 Year
  Sex: Male
  Weight: 79.8 kg

DRUGS (1)
  1. BRENTUXIMAB VEDOTIN (BRENTUXIMAB VEDOTIN) INJECTION [Suspect]
     Indication: DIFFUSE LARGE B-CELL LYMPHOMA
     Dosage: 1.8 MG/KG, Q21D, INTRAVENOUS
     Route: 042
     Dates: start: 20131003, end: 20131003

REACTIONS (11)
  - Tremor [None]
  - Muscular weakness [None]
  - Pyrexia [None]
  - Fatigue [None]
  - Dyspnoea [None]
  - Aphasia [None]
  - Pain in extremity [None]
  - Aspartate aminotransferase increased [None]
  - Diffuse large B-cell lymphoma [None]
  - Malignant neoplasm progression [None]
  - Disease progression [None]
